FAERS Safety Report 6207062-X (Version None)
Quarter: 2009Q2

REPORT INFORMATION
  Report Type: 
  Country: None (occurrence: None)
  Receive Date: 20090528
  Receipt Date: 20090518
  Transmission Date: 20091009
  Serious: Yes (Hospitalization)
  Sender: FDA-Public Use
  Company Number: DE-WATSON-2009-03578

PATIENT
  Age: 83 Year
  Sex: Female

DRUGS (2)
  1. TRIAMCINOLONE ACETONIDE [Suspect]
     Indication: MACULAR OEDEMA
     Dosage: 0.4 ML, SINGLE, INTRAVITREAL
     Route: 031
     Dates: start: 20080101
  2. CHEMOTHERAPEUTICS NOS [Suspect]
     Indication: LEUKAEMIA
     Dosage: UNK
     Route: 065

REACTIONS (1)
  - EYEBALL RUPTURE [None]
